FAERS Safety Report 20212733 (Version 2)
Quarter: 2022Q1

REPORT INFORMATION
  Report Type: Spontaneous
  Country: US (occurrence: US)
  Receive Date: 20211221
  Receipt Date: 20220203
  Transmission Date: 20220424
  Serious: No
  Sender: FDA-Public Use
  Company Number: US-BAYER-2021A267279

PATIENT

DRUGS (5)
  1. MIRALAX [Suspect]
     Active Substance: POLYETHYLENE GLYCOL 3350
     Route: 065
     Dates: start: 20211211
  2. ILEVRO [Concomitant]
     Active Substance: NEPAFENAC
  3. MOXIFLOXACIN [Concomitant]
     Active Substance: MOXIFLOXACIN
  4. PREDNISOLONE ACETATE [Concomitant]
     Active Substance: PREDNISOLONE ACETATE
  5. 20/20 EYE DROP [Concomitant]

REACTIONS (5)
  - Tongue discomfort [None]
  - Adverse event [Unknown]
  - Tongue erythema [Not Recovered/Not Resolved]
  - Chapped lips [Recovered/Resolved]
  - Product taste abnormal [None]

NARRATIVE: CASE EVENT DATE: 20211212
